FAERS Safety Report 25214127 (Version 1)
Quarter: 2025Q2

REPORT INFORMATION
  Report Type: Other
  Country: US (occurrence: US)
  Receive Date: 20250418
  Receipt Date: 20250418
  Transmission Date: 20250717
  Serious: Yes (Other)
  Sender: ITALFARMACO SPA
  Company Number: US-ITALFARMACO SPA-2175144

PATIENT
  Age: 85 Year
  Sex: Female
  Weight: 59.864 kg

DRUGS (6)
  1. TIGLUTIK [Suspect]
     Active Substance: RILUZOLE
     Indication: Amyotrophic lateral sclerosis
     Dates: start: 20250117
  2. PROLIA [Concomitant]
     Active Substance: DENOSUMAB
  3. TYLENOL [Concomitant]
     Active Substance: ACETAMINOPHEN
  4. ROBINUL [Concomitant]
     Active Substance: GLYCOPYRROLATE
  5. LUTEIN ZEAXANTHIN [Concomitant]
  6. ELIQUIS [Concomitant]
     Active Substance: APIXABAN

REACTIONS (2)
  - Liver function test increased [Recovering/Resolving]
  - Gastrointestinal tube insertion [Recovered/Resolved]
